FAERS Safety Report 10993734 (Version 1)
Quarter: 2015Q2

REPORT INFORMATION
  Report Type: Spontaneous
  Country: US (occurrence: US)
  Receive Date: 20150407
  Receipt Date: 20150407
  Transmission Date: 20150821
  Serious: Yes (Hospitalization)
  Sender: FDA-Public Use
  Company Number: US-BIOGENIDEC-2015BI042969

PATIENT
  Age: 58 Year
  Sex: Female

DRUGS (16)
  1. FLEXERIL [Concomitant]
     Active Substance: CYCLOBENZAPRINE HYDROCHLORIDE
  2. AMLODIPINE BESY-BENAZEPRIL HCL [Concomitant]
  3. PREDNISONE (PAK) [Concomitant]
  4. BETAMETHASONE DIPROPIONATE AUG [Concomitant]
  5. GABAPENTIN. [Concomitant]
     Active Substance: GABAPENTIN
  6. OXYCODONE HCL [Concomitant]
     Active Substance: OXYCODONE HYDROCHLORIDE
  7. LEVOTHYROXINE SODIUM. [Concomitant]
     Active Substance: LEVOTHYROXINE SODIUM
  8. ROPINIROLE HCL [Concomitant]
     Active Substance: ROPINIROLE HYDROCHLORIDE
  9. SUMATRIPTAN SUCCINATE. [Concomitant]
     Active Substance: SUMATRIPTAN SUCCINATE
  10. TECFIDERA [Suspect]
     Active Substance: DIMETHYL FUMARATE
     Indication: MULTIPLE SCLEROSIS
     Route: 048
  11. ALLOPURINOL. [Concomitant]
     Active Substance: ALLOPURINOL
  12. DIOVAN [Concomitant]
     Active Substance: VALSARTAN
  13. KLONOPIN [Concomitant]
     Active Substance: CLONAZEPAM
  14. PRILOSEC [Concomitant]
     Active Substance: OMEPRAZOLE MAGNESIUM
  15. CYMBALTA [Concomitant]
     Active Substance: DULOXETINE HYDROCHLORIDE
  16. BACLOFEN. [Concomitant]
     Active Substance: BACLOFEN

REACTIONS (2)
  - Pneumonia [Unknown]
  - Multiple sclerosis relapse [Unknown]

NARRATIVE: CASE EVENT DATE: 20150324
